FAERS Safety Report 9268789 (Version 2)
Quarter: 2013Q2

REPORT INFORMATION
  Report Type: Spontaneous
  Country: GB (occurrence: GB)
  Receive Date: 20130502
  Receipt Date: 20130521
  Transmission Date: 20140414
  Serious: No
  Sender: FDA-Public Use
  Company Number: GB-WATSON-2013-07998

PATIENT
  Age: 65 Year
  Sex: Female

DRUGS (9)
  1. DIAZEPAM (UNKNOWN) [Suspect]
     Indication: MUSCLE SPASMS
     Dosage: 5 MG, 4 TIMES A DAY EVERY 6H
     Route: 048
  2. DIAZEPAM (UNKNOWN) [Suspect]
     Indication: DYSTONIA
  3. LEVOTHYROXINE (UNKNOWN) [Suspect]
     Indication: PRODUCT USED FOR UNKNOWN INDICATION
     Dosage: 100 MCG, UNK
     Route: 065
  4. LEVOTHYROXINE (UNKNOWN) [Suspect]
     Dosage: 25 MCG, UNK
     Route: 065
  5. INSULIN ASPART [Concomitant]
     Indication: PRODUCT USED FOR UNKNOWN INDICATION
     Route: 065
  6. MEBEVERINE [Concomitant]
     Indication: IRRITABLE BOWEL SYNDROME
     Route: 065
  7. MEBEVERINE [Concomitant]
     Indication: GASTROINTESTINAL MOTILITY DISORDER
  8. CO-DYDRAMOL [Concomitant]
     Indication: PRODUCT USED FOR UNKNOWN INDICATION
     Route: 065
  9. PARACETAMOL [Concomitant]
     Indication: PRODUCT USED FOR UNKNOWN INDICATION
     Route: 065

REACTIONS (14)
  - Palpitations [Unknown]
  - Disability [Unknown]
  - Anxiety [Unknown]
  - Hyperventilation [Unknown]
  - Incorrect dose administered [Unknown]
  - Drug ineffective [Unknown]
  - Gait disturbance [Unknown]
  - Sensation of heaviness [Unknown]
  - Memory impairment [Unknown]
  - Myopathy [Unknown]
  - Condition aggravated [Not Recovered/Not Resolved]
  - Headache [Not Recovered/Not Resolved]
  - Musculoskeletal pain [Not Recovered/Not Resolved]
  - Activities of daily living impaired [Unknown]
